FAERS Safety Report 9677624 (Version 4)
Quarter: 2014Q1

REPORT INFORMATION
  Report Type: Spontaneous
  Country: US (occurrence: US)
  Receive Date: 20131108
  Receipt Date: 20140131
  Transmission Date: 20141002
  Serious: Yes (Other)
  Sender: FDA-Public Use
  Company Number: US-JNJFOC-20131100647

PATIENT
  Age: 87 Year
  Sex: Female
  Weight: 66.68 kg

DRUGS (8)
  1. SANDOZ FENTANYL TRANSDERMAL SYSTEM [Suspect]
     Indication: ARTHRITIS
     Route: 062
     Dates: start: 20131018, end: 20131113
  2. SANDOZ FENTANYL TRANSDERMAL SYSTEM [Suspect]
     Indication: PAIN
     Route: 062
     Dates: start: 20131018, end: 20131113
  3. VICODIN [Concomitant]
     Indication: ARTHRALGIA
     Route: 048
     Dates: start: 2010
  4. POTASSIUM [Concomitant]
     Route: 048
  5. OMEPRAZOLE [Concomitant]
     Indication: GASTROOESOPHAGEAL REFLUX DISEASE
     Route: 048
  6. CALCIUM [Concomitant]
     Route: 048
  7. LISINOPRIL [Concomitant]
     Indication: HYPERTENSION
     Route: 048
     Dates: start: 2000
  8. HYDROCODONE [Concomitant]
     Indication: PAIN
     Route: 065

REACTIONS (4)
  - Tooth abscess [Not Recovered/Not Resolved]
  - Drug ineffective [Unknown]
  - Wrong technique in drug usage process [Recovered/Resolved]
  - Application site pruritus [Not Recovered/Not Resolved]
